FAERS Safety Report 4969357-7 (Version None)
Quarter: 2006Q2

REPORT INFORMATION
  Report Type: 
  Country: None (occurrence: None)
  Receive Date: 20060405
  Receipt Date: 20060320
  Transmission Date: 20061013
  Serious: Yes (Hospitalization)
  Sender: FDA-Public Use
  Company Number: 201729

PATIENT
  Age: 48 Year
  Sex: Female
  Weight: 78.4723 kg

DRUGS (13)
  1. AVONEX [Suspect]
     Indication: MULTIPLE SCLEROSIS
     Dosage: 7.5 UG;QW;IM
     Route: 030
     Dates: start: 20030501
  2. AVONEX [Suspect]
     Indication: MULTIPLE SCLEROSIS
     Dosage: 7.5 UG;QW;IM
     Route: 030
     Dates: start: 20031118, end: 20031203
  3. AVONEX [Suspect]
     Indication: MULTIPLE SCLEROSIS
     Dosage: 7.5 UG;QW;IM
     Route: 030
     Dates: start: 20031210, end: 20031210
  4. AVONEX [Suspect]
     Indication: MULTIPLE SCLEROSIS
     Dosage: 7.5 UG;QW;IM
     Route: 030
     Dates: start: 20040517, end: 20040601
  5. AVONEX [Suspect]
     Indication: MULTIPLE SCLEROSIS
     Dosage: 7.5 UG;QW;IM
     Route: 030
     Dates: start: 20040601, end: 20040601
  6. AVONEX [Suspect]
     Indication: MULTIPLE SCLEROSIS
     Dosage: 7.5 UG;QW;IM
     Route: 030
     Dates: start: 20040701, end: 20040801
  7. AVONEX [Suspect]
     Indication: MULTIPLE SCLEROSIS
     Dosage: 7.5 UG;QW;IM
     Route: 030
     Dates: start: 20040901, end: 20040901
  8. AVONEX [Suspect]
     Indication: MULTIPLE SCLEROSIS
     Dosage: 7.5 UG;QW;IM
     Route: 030
     Dates: start: 20040920, end: 20041201
  9. PREVACID [Concomitant]
  10. ZANTAC [Concomitant]
  11. XANAX [Concomitant]
  12. ATENOLOL [Concomitant]
  13. PROPYL - THYRACIL [Concomitant]

REACTIONS (41)
  - ABDOMINAL PAIN [None]
  - ANAEMIA [None]
  - ARRHYTHMIA [None]
  - BLADDER DISORDER [None]
  - BLEPHAROSPASM [None]
  - BLOOD PHOSPHORUS DECREASED [None]
  - BRONCHOSPASM [None]
  - CHEST DISCOMFORT [None]
  - CHEST PAIN [None]
  - CONDITION AGGRAVATED [None]
  - CONSTIPATION [None]
  - CYST [None]
  - CYSTITIS [None]
  - DISORIENTATION [None]
  - DIZZINESS [None]
  - DYSURIA [None]
  - EXTRASYSTOLES [None]
  - FIBROADENOMA OF BREAST [None]
  - GASTRIC DISORDER [None]
  - GASTROOESOPHAGEAL REFLUX DISEASE [None]
  - HAEMORRHOIDS [None]
  - HEADACHE [None]
  - HEART RATE DECREASED [None]
  - HEART RATE INCREASED [None]
  - HYPERTENSION [None]
  - HYPOAESTHESIA [None]
  - INFLUENZA LIKE ILLNESS [None]
  - INJECTION SITE BRUISING [None]
  - INJECTION SITE HAEMORRHAGE [None]
  - INJECTION SITE PAIN [None]
  - MULTIPLE SCLEROSIS [None]
  - MUSCLE SPASMS [None]
  - NASOPHARYNGEAL DISORDER [None]
  - OVARIAN CYST [None]
  - OVARIAN MASS [None]
  - PALPITATIONS [None]
  - SKIN TIGHTNESS [None]
  - SWELLING FACE [None]
  - TRI-IODOTHYRONINE FREE DECREASED [None]
  - UPPER RESPIRATORY TRACT CONGESTION [None]
  - UTERINE LEIOMYOMA [None]
